FAERS Safety Report 6025022-9 (Version None)
Quarter: 2008Q4

REPORT INFORMATION
  Report Type: 
  Country: None (occurrence: None)
  Receive Date: 20081231
  Receipt Date: 20081223
  Transmission Date: 20090506
  Serious: Yes (Hospitalization, Other)
  Sender: FDA-Public Use
  Company Number: US-JNJFOC-20081205354

PATIENT
  Age: 23 Year
  Sex: Female

DRUGS (2)
  1. INFLIXIMAB [Suspect]
     Dosage: 2 WEEKS AFTER INITIAL DOSE
     Route: 042
  2. INFLIXIMAB [Suspect]
     Indication: CROHN'S DISEASE
     Route: 042

REACTIONS (1)
  - TUBERCULOSIS GASTROINTESTINAL [None]
